FAERS Safety Report 16187452 (Version 1)
Quarter: 2019Q2

REPORT INFORMATION
  Report Type: Spontaneous
  Country: GB (occurrence: GB)
  Receive Date: 20190412
  Receipt Date: 20190412
  Transmission Date: 20190711
  Serious: Yes (Other)
  Sender: FDA-Public Use
  Company Number: GB-ALKEM LABORATORIES LIMITED-GB-ALKEM-2018-04910

PATIENT
  Age: 79 Year
  Sex: Female

DRUGS (9)
  1. LORAZEPAM. [Concomitant]
     Active Substance: LORAZEPAM
     Indication: VASCULAR DEMENTIA
  2. LORAZEPAM. [Concomitant]
     Active Substance: LORAZEPAM
     Indication: DEMENTIA ALZHEIMER^S TYPE
     Dosage: 0.5 MG, OD (0.5 MILLIGRAM DAILY)
     Route: 065
  3. SERTALINE [Concomitant]
     Active Substance: SERTRALINE HYDROCHLORIDE
     Indication: DEMENTIA ALZHEIMER^S TYPE
     Dosage: UNKNOWN
  4. QUETIAPINE FUMARATE. [Suspect]
     Active Substance: QUETIAPINE FUMARATE
     Indication: DEMENTIA ALZHEIMER^S TYPE
     Dosage: 50 MG, OD(100 MILLIGRAM DAILY)
     Route: 048
  5. QUETIAPINE FUMARATE. [Suspect]
     Active Substance: QUETIAPINE FUMARATE
     Indication: VASCULAR DEMENTIA
     Dosage: 100 MG, OD (100 MILLIGRAM DAILY)
     Route: 065
  6. MEMATINE [Suspect]
     Active Substance: MEMANTINE
     Indication: VASCULAR DEMENTIA
     Dosage: 5 MG, OD (5 MILLIGRAM DAILY)
     Route: 065
  7. MEMATINE [Suspect]
     Active Substance: MEMANTINE
     Indication: DEMENTIA ALZHEIMER^S TYPE
     Dosage: 10 MG, OD (10 MILLIGRAM DAILY)
     Route: 065
  8. SERTALINE [Concomitant]
     Active Substance: SERTRALINE HYDROCHLORIDE
     Indication: VASCULAR DEMENTIA
     Dosage: 150 MG, OD (SERTALINE 150 MILLIGRAM AT 9.00 )
     Route: 065
  9. OLANZAPINE. [Suspect]
     Active Substance: OLANZAPINE
     Indication: PRODUCT USED FOR UNKNOWN INDICATION
     Dosage: 5 MG, BID
     Route: 065

REACTIONS (2)
  - Product use in unapproved indication [Unknown]
  - Bradycardia [Recovered/Resolved]
